FAERS Safety Report 7148656-7 (Version None)
Quarter: 2010Q4

REPORT INFORMATION
  Report Type: 
  Country: None (occurrence: None)
  Receive Date: 20101209
  Receipt Date: 20101207
  Transmission Date: 20110411
  Serious: Yes (Hospitalization, Other)
  Sender: FDA-Public Use
  Company Number: US-PFIZER INC-2010167023

PATIENT
  Sex: Male
  Weight: 90.7 kg

DRUGS (2)
  1. CORDARONE [Suspect]
     Indication: CARDIAC DISORDER
     Dosage: UNK
     Route: 065
     Dates: start: 20100901
  2. COUMADIN [Concomitant]

REACTIONS (6)
  - ALOPECIA [None]
  - CARDIAC OPERATION [None]
  - FEELING COLD [None]
  - FEELING HOT [None]
  - HYPOAESTHESIA [None]
  - NEURALGIA [None]
